FAERS Safety Report 22181932 (Version 6)
Quarter: 2024Q4

REPORT INFORMATION
  Report Type: Spontaneous
  Country: US (occurrence: US)
  Receive Date: 20230406
  Receipt Date: 20241219
  Transmission Date: 20250115
  Serious: Yes (Other)
  Sender: PFIZER
  Company Number: US-PFIZER INC-PV202300062703

PATIENT
  Age: 59 Year
  Sex: Female

DRUGS (2)
  1. BOSULIF [Suspect]
     Active Substance: BOSUTINIB MONOHYDRATE
     Dosage: TAKE 400 MG BY MOUTH DAILY
     Route: 048
  2. LYRICA [Concomitant]
     Active Substance: PREGABALIN
     Dosage: 150 MG (3 CAPSULES OF 50 MG), DAILY (1 CAPSULE IN THE MORNING, 2 CAPSULES AT NIGHT)
     Route: 048

REACTIONS (3)
  - Neck surgery [Unknown]
  - Nervousness [Unknown]
  - Malaise [Unknown]
